FAERS Safety Report 5210313-1 (Version None)
Quarter: 2007Q1

REPORT INFORMATION
  Report Type: 
  Country: None (occurrence: None)
  Receive Date: 20070111
  Receipt Date: 20070103
  Transmission Date: 20070707
  Serious: No
  Sender: FDA-Public Use
  Company Number: 2007-152535-NL

PATIENT
  Age: 40 Year
  Sex: Male

DRUGS (7)
  1. MIRTAZAPINE [Suspect]
     Dosage: 30 MG QD
  2. ATORVASTATIN CALCIUM [Suspect]
  3. MIRTAZAPINE [Suspect]
  4. MIRTAZAPINE [Suspect]
  5. QUETIAPINE FUMARATE [Concomitant]
  6. GABAPENTIN [Concomitant]
  7. VENLAFAXINE HYDROCHLORIDE [Concomitant]

REACTIONS (8)
  - DIARRHOEA [None]
  - DIZZINESS [None]
  - HEPATITIS [None]
  - HYPERHIDROSIS [None]
  - NAUSEA [None]
  - PALLOR [None]
  - PRESYNCOPE [None]
  - SYNCOPE [None]
